FAERS Safety Report 8092876-4 (Version None)
Quarter: 2012Q1

REPORT INFORMATION
  Report Type: 
  Country: None (occurrence: None)
  Receive Date: 20120128
  Receipt Date: 20110726
  Transmission Date: 20120608
  Serious: No
  Sender: FDA-Public Use
  Company Number: US-ABBOTT-11P-163-0841795-00

PATIENT
  Sex: Female

DRUGS (2)
  1. AVAPRO [Concomitant]
     Indication: PRODUCT USED FOR UNKNOWN INDICATION
  2. HUMIRA [Suspect]
     Indication: RHEUMATOID ARTHRITIS
     Dates: start: 20110608

REACTIONS (4)
  - CHILLS [None]
  - DRUG INEFFECTIVE [None]
  - HYPERHIDROSIS [None]
  - SYNCOPE [None]
